FAERS Safety Report 6774688-4 (Version None)
Quarter: 2010Q2

REPORT INFORMATION
  Report Type: 
  Country: None (occurrence: None)
  Receive Date: 20100617
  Receipt Date: 20100325
  Transmission Date: 20101027
  Serious: Yes (Hospitalization, Other)
  Sender: FDA-Public Use
  Company Number: US-BAYER-201025158NA

PATIENT
  Age: 25 Year
  Sex: Female
  Weight: 62 kg

DRUGS (3)
  1. YASMIN [Suspect]
     Indication: ORAL CONTRACEPTION
     Route: 048
     Dates: start: 20030101, end: 20071201
  2. IBUPROFEN [Concomitant]
     Dates: start: 20051201
  3. TRAMADOL HCL [Concomitant]
     Dates: start: 20071201, end: 20071201

REACTIONS (3)
  - LUNG INFECTION [None]
  - PULMONARY EMBOLISM [None]
  - THROMBOSIS [None]
